FAERS Safety Report 26054509 (Version 1)
Quarter: 2025Q4

REPORT INFORMATION
  Report Type: Spontaneous
  Country: EU (occurrence: EU)
  Receive Date: 20251117
  Receipt Date: 20251117
  Transmission Date: 20260118
  Serious: Yes (Other)
  Sender: MYLAN
  Company Number: None

PATIENT
  Age: 21 Year
  Sex: Male

DRUGS (8)
  1. XANAX [Suspect]
     Active Substance: ALPRAZOLAM
     Indication: Product used for unknown indication
     Dosage: 1 MILLIGRAM, SCORED TABLET
     Dates: start: 20250604, end: 20250604
  2. XANAX [Suspect]
     Active Substance: ALPRAZOLAM
     Dosage: 1 MILLIGRAM, SCORED TABLET
     Route: 065
     Dates: start: 20250604, end: 20250604
  3. XANAX [Suspect]
     Active Substance: ALPRAZOLAM
     Dosage: 1 MILLIGRAM, SCORED TABLET
     Route: 065
     Dates: start: 20250604, end: 20250604
  4. XANAX [Suspect]
     Active Substance: ALPRAZOLAM
     Dosage: 1 MILLIGRAM, SCORED TABLET
     Dates: start: 20250604, end: 20250604
  5. COCAINE [Suspect]
     Active Substance: COCAINE
     Indication: Product used for unknown indication
     Dosage: 2 GRAM
     Dates: start: 20250603, end: 20250604
  6. COCAINE [Suspect]
     Active Substance: COCAINE
     Dosage: 2 GRAM
     Route: 065
     Dates: start: 20250603, end: 20250604
  7. COCAINE [Suspect]
     Active Substance: COCAINE
     Dosage: 2 GRAM
     Route: 065
     Dates: start: 20250603, end: 20250604
  8. COCAINE [Suspect]
     Active Substance: COCAINE
     Dosage: 2 GRAM
     Dates: start: 20250603, end: 20250604

REACTIONS (8)
  - Substance use disorder [Not Recovered/Not Resolved]
  - Chest pain [Unknown]
  - Dyspnoea [Unknown]
  - Eye pain [Unknown]
  - Tremor [Unknown]
  - Somnolence [Unknown]
  - Headache [Recovered/Resolved]
  - Initial insomnia [Unknown]

NARRATIVE: CASE EVENT DATE: 20250604
